FAERS Safety Report 17670141 (Version 1)
Quarter: 2020Q2

REPORT INFORMATION
  Report Type: Spontaneous
  Country: IT (occurrence: IT)
  Receive Date: 20200415
  Receipt Date: 20200415
  Transmission Date: 20200713
  Serious: Yes (Hospitalization)
  Sender: FDA-Public Use
  Company Number: NVSC2020IT099408

PATIENT
  Age: 32 Year
  Sex: Female

DRUGS (3)
  1. TAVOR (LORAZEPAM) [Suspect]
     Active Substance: LORAZEPAM
     Indication: INTENTIONAL OVERDOSE
     Dosage: 8 DF
     Route: 048
     Dates: start: 20200101, end: 20200101
  2. FELISON [Suspect]
     Active Substance: FLURAZEPAM MONOHYDROCHLORIDE
     Indication: INTENTIONAL OVERDOSE
     Dosage: 5 DF
     Route: 048
     Dates: start: 20200101, end: 20200101
  3. ATENOLOL. [Suspect]
     Active Substance: ATENOLOL
     Indication: INTENTIONAL OVERDOSE
     Dosage: 20 DF
     Route: 048
     Dates: start: 20200101, end: 20200101

REACTIONS (3)
  - Sopor [Not Recovered/Not Resolved]
  - Overdose [Not Recovered/Not Resolved]
  - Intentional overdose [Not Recovered/Not Resolved]

NARRATIVE: CASE EVENT DATE: 20200101
